FAERS Safety Report 6262317-8 (Version None)
Quarter: 2009Q3

REPORT INFORMATION
  Report Type: 
  Country: None (occurrence: None)
  Receive Date: 20090709
  Receipt Date: 20090708
  Transmission Date: 20100115
  Serious: Yes (Death, Life-Threatening, Other)
  Sender: FDA-Public Use
  Company Number: FR-BRISTOL-MYERS SQUIBB COMPANY-14639462

PATIENT
  Age: 75 Year
  Sex: Female

DRUGS (8)
  1. HYDREA [Suspect]
     Indication: ESSENTIAL THROMBOCYTHAEMIA
     Dates: start: 19950601, end: 19991101
  2. TAXOL [Suspect]
     Indication: BREAST CANCER
     Dates: start: 20050901, end: 20060101
  3. XAGRID [Suspect]
     Indication: ESSENTIAL THROMBOCYTHAEMIA
     Dates: start: 19990401, end: 20030601
  4. VERCYTE [Suspect]
     Indication: ESSENTIAL THROMBOCYTHAEMIA
     Dates: start: 19991201, end: 20050801
  5. CARBOPLATIN [Suspect]
     Indication: BREAST CANCER
     Dates: start: 20050901, end: 20060101
  6. HERCEPTIN [Suspect]
     Indication: BREAST CANCER
     Dates: start: 20050901, end: 20060101
  7. RADIOTHERAPY [Suspect]
     Dates: start: 20060201, end: 20060401
  8. ARIMIDEX [Suspect]
     Indication: BREAST CANCER
     Dates: start: 20060401, end: 20060901

REACTIONS (3)
  - ACUTE MYELOID LEUKAEMIA [None]
  - LUNG INFECTION [None]
  - MALIGNANT NEOPLASM PROGRESSION [None]
